FAERS Safety Report 7220547-2 (Version None)
Quarter: 2011Q1

REPORT INFORMATION
  Report Type: 
  Country: None (occurrence: None)
  Receive Date: 20110111
  Receipt Date: 20101222
  Transmission Date: 20110831
  Serious: No
  Sender: FDA-Public Use
  Company Number: US-B.I. PHARMACEUTICALS,INC./RIDGEFIELD-2010-BP-15358BP

PATIENT
  Age: 70 Year
  Sex: Male

DRUGS (3)
  1. SLEEPING PILLS [Concomitant]
  2. PRADAXA [Suspect]
     Indication: ATRIAL FIBRILLATION
     Dosage: 300 MG
     Route: 048
     Dates: start: 20101215
  3. PREVACID [Concomitant]
     Indication: GASTROOESOPHAGEAL REFLUX DISEASE
     Dosage: 20 MG

REACTIONS (3)
  - EATING DISORDER [None]
  - INSOMNIA [None]
  - DYSPEPSIA [None]
